FAERS Safety Report 20770622 (Version 1)
Quarter: 2022Q2

REPORT INFORMATION
  Report Type: Spontaneous
  Country: US (occurrence: None)
  Receive Date: 20220429
  Receipt Date: 20220429
  Transmission Date: 20220721
  Serious: Yes (Hospitalization, Other)
  Sender: FDA-Public Use
  Company Number: 2022A165008

PATIENT
  Age: 74 Year
  Sex: Male

DRUGS (1)
  1. DURVALUMAB [Suspect]
     Active Substance: DURVALUMAB
     Indication: Lung adenocarcinoma stage III
     Dosage: MAINTENANCY THERAPY
     Route: 065
     Dates: start: 202105, end: 202108

REACTIONS (2)
  - Radiation pneumonitis [Recovering/Resolving]
  - Pulmonary toxicity [Recovering/Resolving]

NARRATIVE: CASE EVENT DATE: 20210801
